FAERS Safety Report 5635620-X (Version None)
Quarter: 2008Q1

REPORT INFORMATION
  Report Type: 
  Country: None (occurrence: None)
  Receive Date: 20080222
  Receipt Date: 20080218
  Transmission Date: 20080703
  Serious: Yes (Death, Hospitalization, Other)
  Sender: FDA-Public Use
  Company Number: AT-BAYER-AT-2007-015049

PATIENT
  Age: 86 Year
  Sex: Male

DRUGS (1)
  1. CAMPATH [Suspect]
     Indication: CHRONIC LYMPHOCYTIC LEUKAEMIA
     Dates: start: 20050912, end: 20051030

REACTIONS (4)
  - ANAEMIA [None]
  - MYELODYSPLASTIC SYNDROME [None]
  - PYREXIA [None]
  - SEPTIC SHOCK [None]
